FAERS Safety Report 8553250-7 (Version None)
Quarter: 2012Q3

REPORT INFORMATION
  Report Type: 
  Country: None (occurrence: None)
  Receive Date: 20120731
  Receipt Date: 20110628
  Transmission Date: 20120928
  Serious: Yes (Other)
  Sender: FDA-Public Use
  Company Number: US-BAYER-201024771NA

PATIENT
  Age: 25 Year
  Sex: Female
  Weight: 82 kg

DRUGS (4)
  1. YAZ [Suspect]
     Indication: CONTRACEPTION
     Dosage: UNK
     Route: 048
     Dates: start: 20080101, end: 20091001
  2. SYNTHROID [Concomitant]
     Dates: start: 20060101
  3. AMPHETAMINE AND DEXTROAMPHETAMINE SALTS [Concomitant]
  4. YASMIN [Suspect]
     Indication: ORAL CONTRACEPTION
     Dosage: UNK
     Route: 048
     Dates: start: 20060101, end: 20080101

REACTIONS (8)
  - GALLBLADDER NON-FUNCTIONING [None]
  - DIARRHOEA [None]
  - CONSTIPATION [None]
  - ABDOMINAL PAIN UPPER [None]
  - CHOLECYSTITIS CHRONIC [None]
  - NAUSEA [None]
  - BILIARY DYSKINESIA [None]
  - VOMITING [None]
